FAERS Safety Report 4623485-4 (Version None)
Quarter: 2005Q1

REPORT INFORMATION
  Report Type: 
  Country: None (occurrence: None)
  Receive Date: 20050330
  Receipt Date: 20050315
  Transmission Date: 20050727
  Serious: Yes (Other)
  Sender: FDA-Public Use
  Company Number: 2005-BP-04391RO

PATIENT
  Age: 75 Year
  Sex: Male

DRUGS (6)
  1. METHOTREXATE [Suspect]
     Indication: RHEUMATOID ARTHRITIS
     Dosage: SEE IMAGE
     Route: 048
  2. PREDNISONE [Concomitant]
  3. LOSEC (OMEPRAZOLE) [Concomitant]
  4. ARTHROTEC [Concomitant]
  5. ACTONEL [Concomitant]
  6. FERROUS SULPHATE (FERROUS SULFATE) [Concomitant]

REACTIONS (3)
  - MEDICATION ERROR [None]
  - MOUTH ULCERATION [None]
  - TONGUE ULCERATION [None]
